FAERS Safety Report 18587640 (Version 2)
Quarter: 2020Q4

REPORT INFORMATION
  Report Type: Report from Study
  Country: GB (occurrence: GB)
  Receive Date: 20201207
  Receipt Date: 20201215
  Transmission Date: 20210114
  Serious: Yes (Other)
  Sender: FDA-Public Use
  Company Number: NVSC2020GB322222

PATIENT
  Sex: Female

DRUGS (1)
  1. HYRIMOZ [Suspect]
     Active Substance: ADALIMUMAB-ADAZ
     Indication: PSORIASIS
     Dosage: 1 DF, Q2W (ROUTE: AS DIRECTED)
     Route: 065
     Dates: start: 20200116

REACTIONS (2)
  - Neoplasm malignant [Unknown]
  - Chest discomfort [Unknown]
